FAERS Safety Report 18743290 (Version 2)
Quarter: 2021Q1

REPORT INFORMATION
  Report Type: Spontaneous
  Country: US (occurrence: US)
  Receive Date: 20210115
  Receipt Date: 20210118
  Transmission Date: 20210419
  Serious: No
  Sender: FDA-Public Use
  Company Number: US-TEVA-2021-US-1868298

PATIENT
  Weight: 58.05 kg

DRUGS (1)
  1. METOPROLOL SUCCINATE TEVA [Suspect]
     Active Substance: METOPROLOL SUCCINATE
     Indication: ARRHYTHMIA
     Dosage: 50 MILLIGRAM DAILY; 50 MG ONCE A DAY?LOT NO. MEDICATION IN A PHARMACY BOTTLE.
     Route: 065

REACTIONS (1)
  - Therapeutic product effect incomplete [Unknown]
